FAERS Safety Report 7942296-5 (Version None)
Quarter: 2011Q4

REPORT INFORMATION
  Report Type: 
  Country: None (occurrence: None)
  Receive Date: 20111128
  Receipt Date: 20111110
  Transmission Date: 20120403
  Serious: No
  Sender: FDA-Public Use
  Company Number: US-ABBOTT-11P-163-0873953-00

PATIENT
  Age: 47 Year
  Sex: Male
  Weight: 86.26 kg

DRUGS (1)
  1. ANDROGEL [Suspect]
     Indication: BLOOD TESTOSTERONE DECREASED
     Dosage: 1 IN 1 DAYS, APPLIED TO SHOULDERS + UPPER ARMS
     Route: 061
     Dates: start: 20111001

REACTIONS (3)
  - SKIN DISCOLOURATION [None]
  - BLOOD TESTOSTERONE ABNORMAL [None]
  - DRY SKIN [None]
